FAERS Safety Report 12243799 (Version 1)
Quarter: 2016Q2

REPORT INFORMATION
  Report Type: Report from Study
  Country: BR (occurrence: BR)
  Receive Date: 20160406
  Receipt Date: 20160406
  Transmission Date: 20160815
  Serious: Yes (Hospitalization)
  Sender: FDA-Public Use
  Company Number: PHHY2016BR044593

PATIENT
  Sex: Female
  Weight: 50 kg

DRUGS (2)
  1. HIDROXIUREA [Concomitant]
     Active Substance: HYDROXYUREA
     Indication: PRODUCT USED FOR UNKNOWN INDICATION
     Route: 065
  2. EXJADE [Suspect]
     Active Substance: DEFERASIROX
     Indication: SICKLE CELL ANAEMIA
     Dosage: 1000 MG (20 MG/KG), UNK
     Route: 065
     Dates: start: 2013

REACTIONS (5)
  - Peripheral ischaemia [Recovered/Resolved]
  - Arthralgia [Recovered/Resolved]
  - Spinal column injury [Recovered/Resolved]
  - Serum ferritin increased [Recovered/Resolved]
  - Spinal cord ischaemia [Recovered/Resolved]
